FAERS Safety Report 12207333 (Version 1)
Quarter: 2016Q1

REPORT INFORMATION
  Report Type: Spontaneous
  Country: US (occurrence: US)
  Receive Date: 20160324
  Receipt Date: 20160324
  Transmission Date: 20160526
  Serious: Yes (Hospitalization)
  Sender: FDA-Public Use
  Company Number: US-ASTRAZENECA-2016SE30565

PATIENT

DRUGS (2)
  1. SYNAGIS [Suspect]
     Active Substance: PALIVIZUMAB
     Indication: ILL-DEFINED DISORDER
     Route: 030
     Dates: start: 20151117, end: 20151117
  2. SYNAGIS [Suspect]
     Active Substance: PALIVIZUMAB
     Indication: ILL-DEFINED DISORDER
     Route: 030
     Dates: start: 20151215, end: 20151215

REACTIONS (2)
  - Bronchiolitis [Unknown]
  - Cough [Unknown]

NARRATIVE: CASE EVENT DATE: 20151117
